FAERS Safety Report 12298938 (Version 1)
Quarter: 2016Q2

REPORT INFORMATION
  Report Type: Spontaneous
  Country: US (occurrence: None)
  Receive Date: 20160422
  Receipt Date: 20160422
  Transmission Date: 20160815
  Serious: Yes (Other)
  Sender: FDA-Public Use
  Company Number: None

PATIENT
  Age: 55 Year
  Sex: Female
  Weight: 74.39 kg

DRUGS (6)
  1. FLUOCINONIDE OINTMENT USP 0.05%, 15 G TARO [Suspect]
     Active Substance: FLUOCINONIDE
     Indication: RASH
     Dosage: 1 LIGHT APPLICATION AS NEEDED APPLIED TO A SURFACE, USUALLY THE SKIN
     Route: 061
     Dates: start: 20160205, end: 20160205
  2. FENTANYL TRANSDERMAL SYSTEM [Concomitant]
     Active Substance: FENTANYL
  3. DAILY MULTI [Concomitant]
  4. FLUOCINONIDE OINTMENT USP 0.05%, 15 G TARO [Suspect]
     Active Substance: FLUOCINONIDE
     Indication: DRY SKIN
     Dosage: 1 LIGHT APPLICATION AS NEEDED APPLIED TO A SURFACE, USUALLY THE SKIN
     Route: 061
     Dates: start: 20160205, end: 20160205
  5. LEVOTHYROXINE. [Concomitant]
     Active Substance: LEVOTHYROXINE
  6. CYMBALTA [Concomitant]
     Active Substance: DULOXETINE HYDROCHLORIDE

REACTIONS (3)
  - Drug hypersensitivity [None]
  - Autoimmune disorder [None]
  - Product label confusion [None]

NARRATIVE: CASE EVENT DATE: 20160206
